FAERS Safety Report 8836655 (Version 1)
Quarter: 2012Q4

REPORT INFORMATION
  Report Type: Spontaneous
  Country: None (occurrence: None)
  Receive Date: 20121010
  Receipt Date: 20121010
  Transmission Date: 20130627
  Serious: Yes (Hospitalization)
  Sender: FDA-Public Use
  Company Number: 2012P1060595

PATIENT
  Age: 81 Year
  Sex: Female

DRUGS (8)
  1. ZINACEF [Suspect]
     Indication: APPENDICITIS
     Route: 042
     Dates: start: 20120221, end: 20120227
  2. ZINACEF [Suspect]
     Indication: PYELONEPHRITIS
     Route: 042
     Dates: start: 20120221, end: 20120227
  3. ZINACEF [Suspect]
     Indication: APPENDICITIS
     Route: 042
     Dates: start: 20120319, end: 20120328
  4. ZINACEF [Suspect]
     Indication: PYELONEPHRITIS
     Route: 042
     Dates: start: 20120319, end: 20120328
  5. METRONIDAZOLE [Suspect]
     Indication: APPENDICITIS
     Route: 042
     Dates: start: 20120221, end: 20120227
  6. METRONIDAZOLE [Suspect]
     Indication: APPENDICITIS
     Route: 048
     Dates: start: 20120228, end: 20120306
  7. METRONIDAZOLE [Suspect]
     Indication: APPENDICITIS
     Route: 048
     Dates: start: 20120320, end: 20120328
  8. CEPHALEXIN [Suspect]
     Indication: APPENDICITIS
     Dates: start: 20120228, end: 20120305

REACTIONS (2)
  - Pyelonephritis [None]
  - Clostridium difficile colitis [None]
